FAERS Safety Report 26082023 (Version 1)
Quarter: 2025Q4

REPORT INFORMATION
  Report Type: Spontaneous
  Country: EU (occurrence: EU)
  Receive Date: 20251124
  Receipt Date: 20251124
  Transmission Date: 20260118
  Serious: Yes (Other)
  Sender: ABBVIE
  Company Number: None

PATIENT
  Age: 85 Year
  Sex: Male
  Weight: 79 kg

DRUGS (1)
  1. IMBRUVICA [Suspect]
     Active Substance: IBRUTINIB
     Indication: Waldenstrom^s macroglobulinaemia
     Dosage: 280 MG, ONCE A DAY
     Route: 048
     Dates: start: 20210928, end: 20251013

REACTIONS (1)
  - Papulopustular rosacea [Recovered/Resolved]

NARRATIVE: CASE EVENT DATE: 20250917
